FAERS Safety Report 20803079 (Version 1)
Quarter: 2022Q2

REPORT INFORMATION
  Report Type: Spontaneous
  Country: US (occurrence: US)
  Receive Date: 20220509
  Receipt Date: 20220509
  Transmission Date: 20220720
  Serious: Yes (Other)
  Sender: FDA-Public Use
  Company Number: US-PFIZER INC-202200657973

PATIENT
  Age: 58 Year
  Sex: Female
  Weight: 68 kg

DRUGS (7)
  1. PAXLOVID [Suspect]
     Active Substance: NIRMATRELVIR\RITONAVIR
     Indication: COVID-19 treatment
     Dosage: UNK
     Dates: start: 202204
  2. TYVASO [Suspect]
     Active Substance: TREPROSTINIL
     Indication: Pulmonary arterial hypertension
     Dosage: UNK
     Dates: start: 20220214
  3. TYVASO [Suspect]
     Active Substance: TREPROSTINIL
     Dosage: 4X/DAY(54-72 UG, QID, INHALATION)
  4. TYVASO [Suspect]
     Active Substance: TREPROSTINIL
     Dosage: UNK
  5. TYVASO [Suspect]
     Active Substance: TREPROSTINIL
     Dosage: UNK
  6. LETAIRIS [Concomitant]
     Active Substance: AMBRISENTAN
     Dosage: UNK
  7. SILDENAFIL CITRATE [Concomitant]
     Active Substance: SILDENAFIL CITRATE
     Dosage: UNK

REACTIONS (3)
  - Atrial fibrillation [Unknown]
  - Oxygen saturation decreased [Unknown]
  - Swelling [Unknown]

NARRATIVE: CASE EVENT DATE: 20220101
